FAERS Safety Report 6185967-6 (Version None)
Quarter: 2009Q2

REPORT INFORMATION
  Report Type: 
  Country: None (occurrence: None)
  Receive Date: 20090511
  Receipt Date: 20090506
  Transmission Date: 20091009
  Serious: Yes (Death)
  Sender: FDA-Public Use
  Company Number: GB-ABBOTT-09P-167-0569000-00

PATIENT
  Sex: Female
  Weight: 68 kg

DRUGS (7)
  1. HUMIRA [Suspect]
     Indication: RHEUMATOID ARTHRITIS
     Route: 058
     Dates: start: 20070719, end: 20071008
  2. METHOTREXATE [Concomitant]
     Indication: DRUG USE FOR UNKNOWN INDICATION
     Dates: start: 20060424
  3. CELECOXIB [Concomitant]
     Indication: DRUG USE FOR UNKNOWN INDICATION
     Dates: start: 20060424
  4. ACETAMINOPHEN W/ CODEINE [Concomitant]
     Indication: DRUG USE FOR UNKNOWN INDICATION
     Dates: start: 20060424
  5. FOLIC ACID [Concomitant]
     Indication: DRUG USE FOR UNKNOWN INDICATION
     Dates: start: 20060424
  6. FOSAMAX [Concomitant]
     Indication: DRUG USE FOR UNKNOWN INDICATION
     Dates: start: 20060424
  7. OMEPRAZOLE [Concomitant]
     Indication: DRUG USE FOR UNKNOWN INDICATION
     Dates: start: 20060424

REACTIONS (4)
  - BRONCHOPNEUMONIA [None]
  - DECUBITUS ULCER [None]
  - LIVER DISORDER [None]
  - LUNG DISORDER [None]
